FAERS Safety Report 20151021 (Version 1)
Quarter: 2021Q4

REPORT INFORMATION
  Report Type: Spontaneous
  Country: US (occurrence: None)
  Receive Date: 20211203
  Receipt Date: 20211203
  Transmission Date: 20220303
  Serious: Yes (Hospitalization)
  Sender: FDA-Public Use
  Company Number: None

PATIENT
  Age: 59 Year
  Sex: Female

DRUGS (21)
  1. OPSUMIT [Suspect]
     Active Substance: MACITENTAN
     Indication: Pulmonary arterial hypertension
     Dosage: FREQUENCY : DAILY;?
     Route: 048
     Dates: start: 20151102
  2. vetetri [Concomitant]
  3. NORCO [Concomitant]
     Active Substance: ACETAMINOPHEN\HYDROCODONE BITARTRATE
  4. LORAZEPAM [Concomitant]
     Active Substance: LORAZEPAM
  5. K-TAB [Concomitant]
     Active Substance: POTASSIUM CHLORIDE
  6. MONTELUKAST [Concomitant]
     Active Substance: MONTELUKAST SODIUM
  7. WARFARIN [Concomitant]
     Active Substance: WARFARIN
  8. ALBUTEROL SULFATE [Concomitant]
     Active Substance: ALBUTEROL SULFATE
  9. EMPAGLIFLOZIN [Concomitant]
     Active Substance: EMPAGLIFLOZIN
  10. ATORVASTATIN [Concomitant]
     Active Substance: ATORVASTATIN
  11. albuterol neb soln [Concomitant]
  12. FLONASE [Concomitant]
     Active Substance: FLUTICASONE PROPIONATE
  13. SPIRONOLACTONE [Concomitant]
     Active Substance: SPIRONOLACTONE
  14. WIXELA INHUB [Concomitant]
     Active Substance: FLUTICASONE PROPIONATE\SALMETEROL XINAFOATE
  15. TORSEMIDE [Concomitant]
     Active Substance: TORSEMIDE
  16. HUMULIN N [Concomitant]
     Active Substance: INSULIN HUMAN
  17. GLIPIZIDE [Concomitant]
     Active Substance: GLIPIZIDE
  18. DIGOXIN [Concomitant]
     Active Substance: DIGOXIN
  19. FAMOTIDINE [Concomitant]
     Active Substance: FAMOTIDINE
  20. CITALOPRAM [Concomitant]
     Active Substance: CITALOPRAM HYDROBROMIDE
  21. ONDANSETRON [Concomitant]
     Active Substance: ONDANSETRON

REACTIONS (2)
  - Sepsis [None]
  - Catheter site infection [None]

NARRATIVE: CASE EVENT DATE: 20211021
